FAERS Safety Report 13940703 (Version 1)
Quarter: 2017Q3

REPORT INFORMATION
  Report Type: Report from Study
  Country: FR (occurrence: FR)
  Receive Date: 20170906
  Receipt Date: 20170906
  Transmission Date: 20171127
  Serious: Yes (Other)
  Sender: FDA-Public Use
  Company Number: PHHY2017FR128111

PATIENT
  Age: 72 Year
  Sex: Female

DRUGS (3)
  1. AFINITOR [Suspect]
     Active Substance: EVEROLIMUS
     Dosage: 7.5 MG, QD
     Route: 065
     Dates: start: 20170324, end: 20170616
  2. AFINITOR [Suspect]
     Active Substance: EVEROLIMUS
     Dosage: UNK
     Route: 065
     Dates: end: 20170803
  3. AFINITOR [Suspect]
     Active Substance: EVEROLIMUS
     Indication: PANCREATIC NEUROENDOCRINE TUMOUR METASTATIC
     Dosage: 5 MG, QD
     Route: 065
     Dates: start: 20170317

REACTIONS (4)
  - Mucosal inflammation [Recovered/Resolved]
  - Malignant neoplasm progression [Unknown]
  - Oesophagitis [Recovered/Resolved]
  - Pancreatic neuroendocrine tumour metastatic [Unknown]

NARRATIVE: CASE EVENT DATE: 20170616
